FAERS Safety Report 21592842 (Version 1)
Quarter: 2022Q4

REPORT INFORMATION
  Report Type: Spontaneous
  Country: None (occurrence: US)
  Receive Date: 20221114
  Receipt Date: 20221114
  Transmission Date: 20230112
  Serious: Yes (Hospitalization)
  Sender: FDA-Public Use
  Company Number: US-P+L Development, LLC-2134851

PATIENT
  Sex: Female

DRUGS (1)
  1. PEPTIC RELIEF ORIGINAL STRENGTH [Suspect]
     Active Substance: BISMUTH SUBSALICYLATE
     Indication: Dyspepsia
     Route: 048

REACTIONS (5)
  - Choking [None]
  - Cough [None]
  - Chest pain [None]
  - Dyspnoea [None]
  - Throat irritation [None]
